FAERS Safety Report 13979509 (Version 3)
Quarter: 2017Q4

REPORT INFORMATION
  Report Type: Report from Study
  Country: US (occurrence: US)
  Receive Date: 20170914
  Receipt Date: 20171225
  Transmission Date: 20180321
  Serious: Yes (Death, Other)
  Sender: FDA-Public Use
  Company Number: US-ASTELLAS-2017US024512

PATIENT
  Age: 66 Year
  Sex: Male

DRUGS (1)
  1. ENZALUTAMIDE [Suspect]
     Active Substance: ENZALUTAMIDE
     Indication: HORMONE-REFRACTORY PROSTATE CANCER
     Route: 048
     Dates: start: 20170425, end: 20171009

REACTIONS (7)
  - Rash [Recovering/Resolving]
  - Death [Fatal]
  - Tooth extraction [Unknown]
  - Decreased appetite [Unknown]
  - Fatigue [Unknown]
  - Sepsis [Unknown]
  - Back pain [Unknown]

NARRATIVE: CASE EVENT DATE: 20170515
